FAERS Safety Report 9214670 (Version 1)
Quarter: 2013Q1

REPORT INFORMATION
  Report Type: Spontaneous
  Country: US (occurrence: None)
  Receive Date: 20120827
  Receipt Date: 20120827
  Transmission Date: 20140127
  Serious: No
  Sender: FDA-Public Use
  Company Number: 352477

PATIENT
  Age: 52 Year
  Sex: Female
  Weight: 111.1 kg

DRUGS (4)
  1. VICTOZA [Suspect]
     Indication: TYPE 2 DIABETES MELLITUS
     Route: 058
     Dates: start: 201202
  2. METFORMIN (METFORMIN) [Concomitant]
  3. ACTOS(PIOGLITAZONE HYDROCHLORIDE) [Concomitant]
  4. BENAZEPRIL (BENAZEPRIL) [Concomitant]

REACTIONS (1)
  - Microalbuminuria [None]
